FAERS Safety Report 6869639-8 (Version None)
Quarter: 2010Q3

REPORT INFORMATION
  Report Type: 
  Country: None (occurrence: None)
  Receive Date: 20100722
  Receipt Date: 20080822
  Transmission Date: 20110219
  Serious: No
  Sender: FDA-Public Use
  Company Number: US-PFIZER INC-2008070557

PATIENT
  Sex: Female
  Weight: 113.6 kg

DRUGS (5)
  1. CHANTIX [Suspect]
     Indication: SMOKING CESSATION THERAPY
     Route: 048
     Dates: start: 20080730, end: 20080801
  2. ANTIHYPERTENSIVES [Concomitant]
     Indication: HYPERTENSION
     Route: 048
  3. ALL OTHER THERAPEUTIC PRODUCTS [Concomitant]
     Indication: HYPERTENSION
     Route: 048
  4. TRAZODONE [Concomitant]
     Indication: SLEEP DISORDER
     Route: 048
  5. PAXIL [Concomitant]
     Route: 048

REACTIONS (2)
  - MALAISE [None]
  - NAUSEA [None]
